FAERS Safety Report 15080041 (Version 4)
Quarter: 2019Q1

REPORT INFORMATION
  Report Type: Spontaneous
  Country: US (occurrence: US)
  Receive Date: 20180627
  Receipt Date: 20190314
  Transmission Date: 20190417
  Serious: No
  Sender: FDA-Public Use
  Company Number: US-VIFOR (INTERNATIONAL) INC.-VIT-2018-05331

PATIENT
  Sex: Male

DRUGS (13)
  1. VELTASSA [Suspect]
     Active Substance: PATIROMER
     Indication: HYPERKALAEMIA
     Route: 048
     Dates: start: 20180510
  2. VELTASSA [Suspect]
     Active Substance: PATIROMER
     Route: 048
     Dates: start: 20180605
  3. FUROSEMIDE. [Concomitant]
     Active Substance: FUROSEMIDE
  4. COREG [Concomitant]
     Active Substance: CARVEDILOL
  5. LANTUS [Concomitant]
     Active Substance: INSULIN GLARGINE
  6. WARFARIN SODIUM. [Concomitant]
     Active Substance: WARFARIN SODIUM
  7. NEPHROCAPS [Concomitant]
     Active Substance: ASCORBIC ACID\BIOTIN\CYANOCOBALAMIN\FOLIC ACID\NIACIN\PANTOTHENIC ACID\PYRIDOXINE\RIBOFLAVIN\THIAMINE
  8. NOVOLOG [Concomitant]
     Active Substance: INSULIN ASPART
  9. FLORANEX [Concomitant]
     Active Substance: LACTOBACILLUS ACIDOPHILUS\LACTOBACILLUS DELBRUECKII SUBSP. BULGARICUS
  10. VELTASSA [Suspect]
     Active Substance: PATIROMER
  11. ALLOPURINOL. [Concomitant]
     Active Substance: ALLOPURINOL
  12. OMEPRAZOLE. [Concomitant]
     Active Substance: OMEPRAZOLE
  13. MYFORTIC [Concomitant]
     Active Substance: MYCOPHENOLATE SODIUM

REACTIONS (3)
  - Off label use [Unknown]
  - Polyuria [Unknown]
  - Constipation [Unknown]

NARRATIVE: CASE EVENT DATE: 2018
